FAERS Safety Report 14856172 (Version 1)
Quarter: 2018Q2

REPORT INFORMATION
  Report Type: Spontaneous
  Country: US (occurrence: US)
  Receive Date: 20180507
  Receipt Date: 20180507
  Transmission Date: 20180711
  Serious: No
  Sender: FDA-Public Use
  Company Number: US-ROCHE-2014939

PATIENT
  Sex: Female

DRUGS (3)
  1. OFEV [Concomitant]
     Active Substance: NINTEDANIB
  2. HYDROMORPHONE HCL [Concomitant]
     Active Substance: HYDROMORPHONE HYDROCHLORIDE
  3. ESBRIET [Suspect]
     Active Substance: PIRFENIDONE
     Indication: BRONCHIECTASIS
     Dosage: 2 CAPSULES 3 TIMES DAY
     Route: 048
     Dates: start: 20171024

REACTIONS (3)
  - Intentional product use issue [Unknown]
  - Off label use [Unknown]
  - No adverse event [Unknown]
